FAERS Safety Report 18577832 (Version 7)
Quarter: 2024Q1

REPORT INFORMATION
  Report Type: Report from Study
  Country: US (occurrence: US)
  Receive Date: 20201204
  Receipt Date: 20240208
  Transmission Date: 20240409
  Serious: Yes (Disabling)
  Sender: FDA-Public Use
  Company Number: US-SANOFI-00360543

PATIENT
  Age: 43 Year
  Sex: Female

DRUGS (4)
  1. ALEMTUZUMAB [Suspect]
     Active Substance: ALEMTUZUMAB
     Indication: Multiple sclerosis
     Dosage: 12 MG, QD
     Route: 041
     Dates: start: 20201109, end: 20201112
  2. ALEMTUZUMAB [Suspect]
     Active Substance: ALEMTUZUMAB
     Dosage: 12 MG, QD
     Route: 041
     Dates: start: 20201112, end: 20201113
  3. ALEMTUZUMAB [Suspect]
     Active Substance: ALEMTUZUMAB
     Dosage: 12 MG, QD
     Route: 041
     Dates: start: 20201113, end: 20201113
  4. ALEMTUZUMAB [Suspect]
     Active Substance: ALEMTUZUMAB
     Dosage: 12 MG, QD (SUBSEQUENT COURSE (1 VIAL, 12 MG/DAY) X 3 CONSECUTIVE DAYS)
     Route: 041

REACTIONS (26)
  - Loss of personal independence in daily activities [Not Recovered/Not Resolved]
  - Dysstasia [Not Recovered/Not Resolved]
  - Mobility decreased [Not Recovered/Not Resolved]
  - Muscular weakness [Recovered/Resolved]
  - Condition aggravated [Recovered/Resolved]
  - Muscular weakness [Recovering/Resolving]
  - Condition aggravated [Recovering/Resolving]
  - Skin tightness [Not Recovered/Not Resolved]
  - Vision blurred [Unknown]
  - Decreased appetite [Recovered/Resolved]
  - Miliaria [Recovered/Resolved]
  - Protein total decreased [Unknown]
  - Ocular discomfort [Recovered/Resolved]
  - Feeling hot [Recovered/Resolved]
  - Infusion related reaction [Unknown]
  - White blood cell count decreased [Recovered/Resolved]
  - Hot flush [Not Recovered/Not Resolved]
  - Body temperature increased [Not Recovered/Not Resolved]
  - Nausea [Unknown]
  - Dyspnoea [Unknown]
  - Urticaria [Recovered/Resolved]
  - Chest discomfort [Recovered/Resolved]
  - Decreased immune responsiveness [Unknown]
  - Liver disorder [Unknown]
  - Fall [Recovered/Resolved]
  - White blood cell count abnormal [Unknown]

NARRATIVE: CASE EVENT DATE: 20201101
